FAERS Safety Report 17093696 (Version 1)
Quarter: 2019Q4

REPORT INFORMATION
  Report Type: Report from Study
  Country: GB (occurrence: GB)
  Receive Date: 20191129
  Receipt Date: 20191129
  Transmission Date: 20200122
  Serious: Yes (Other)
  Sender: FDA-Public Use
  Company Number: GB-EMD SERONO-9130357

PATIENT
  Sex: Female

DRUGS (1)
  1. MAVENCLAD [Suspect]
     Active Substance: CLADRIBINE
     Indication: MULTIPLE SCLEROSIS
     Dosage: FIRST YEAR THERAPY: TWO TABLETS ON DAY 1 AND ONE TABLET ON DAYS 2 TO 5 (EACH OF 10 MG)
     Route: 048
     Dates: start: 20181101

REACTIONS (1)
  - Tuberculosis [Unknown]
